FAERS Safety Report 6858089-6 (Version None)
Quarter: 2010Q3

REPORT INFORMATION
  Report Type: 
  Country: None (occurrence: None)
  Receive Date: 20100719
  Receipt Date: 20080425
  Transmission Date: 20110219
  Serious: No
  Sender: FDA-Public Use
  Company Number: US-PFIZER INC-2008008988

PATIENT
  Sex: Female
  Weight: 41.7 kg

DRUGS (1)
  1. CHANTIX [Suspect]

REACTIONS (5)
  - DEPRESSION [None]
  - EATING DISORDER [None]
  - MALAISE [None]
  - NAUSEA [None]
  - WEIGHT DECREASED [None]
